FAERS Safety Report 12486167 (Version 2)
Quarter: 2016Q3

REPORT INFORMATION
  Report Type: Spontaneous
  Country: US (occurrence: US)
  Receive Date: 20160621
  Receipt Date: 20160726
  Transmission Date: 20161109
  Serious: Yes (Other)
  Sender: FDA-Public Use
  Company Number: US-BRISTOL-MYERS SQUIBB COMPANY-BMS-2016-045324

PATIENT
  Sex: Female
  Weight: 61 kg

DRUGS (1)
  1. COUMADIN [Suspect]
     Active Substance: WARFARIN SODIUM
     Indication: ATRIAL FIBRILLATION
     Dosage: 7.5 MG, UNK
     Route: 048

REACTIONS (5)
  - Osteoporosis [Unknown]
  - Bronchitis [Unknown]
  - Body height decreased [Unknown]
  - Appendicectomy [Unknown]
  - Transfusion [Unknown]
